FAERS Safety Report 10518601 (Version 14)
Quarter: 2015Q4

REPORT INFORMATION
  Report Type: Report from Study
  Country: GB (occurrence: GB)
  Receive Date: 20141015
  Receipt Date: 20151202
  Transmission Date: 20160304
  Serious: Yes (Other)
  Sender: FDA-Public Use
  Company Number: GB-LEO PHARMA-224716

PATIENT
  Age: 53 Year
  Sex: Female

DRUGS (1)
  1. PICATO [Suspect]
     Active Substance: INGENOL MEBUTATE
     Indication: ACTINIC KERATOSIS
     Route: 061
     Dates: start: 20131116, end: 20131118

REACTIONS (29)
  - Application site reaction [Recovered/Resolved]
  - Application site reaction [Unknown]
  - Insomnia [Recovered/Resolved]
  - Drug administered at inappropriate site [Unknown]
  - Headache [Recovered/Resolved]
  - Application site discolouration [Unknown]
  - Self esteem decreased [Unknown]
  - Anxiety [Unknown]
  - Stress [Unknown]
  - Skin sensitisation [Unknown]
  - Application site infection [Recovered/Resolved]
  - Application site reaction [Not Recovered/Not Resolved]
  - Skin reaction [Recovered/Resolved]
  - Psychiatric symptom [Unknown]
  - Application site pain [Recovered/Resolved]
  - Application site discharge [Recovered/Resolved]
  - Skin discolouration [Recovered/Resolved]
  - Application site scar [Not Recovered/Not Resolved]
  - Discomfort [Unknown]
  - Application site dryness [Recovered/Resolved]
  - Application site swelling [Recovered/Resolved]
  - Drug ineffective [Unknown]
  - Application site pustules [Recovered/Resolved]
  - Incorrect dose administered [Unknown]
  - Intentional product misuse [Unknown]
  - Application site erythema [Recovering/Resolving]
  - Application site discomfort [Recovered/Resolved]
  - Application site haemorrhage [Recovered/Resolved]
  - Application site erythema [Unknown]

NARRATIVE: CASE EVENT DATE: 201311
